FAERS Safety Report 4382092-1 (Version None)
Quarter: 2004Q2

REPORT INFORMATION
  Report Type: 
  Country: None (occurrence: None)
  Receive Date: 20040615
  Receipt Date: 20040524
  Transmission Date: 20050107
  Serious: Yes (Death)
  Sender: FDA-Public Use
  Company Number: 20040023USST

PATIENT

DRUGS (5)
  1. PROCARBAZINE HYDROCHLORIDE [Suspect]
     Indication: CENTRAL NERVOUS SYSTEM LYMPHOMA
  2. METHOTREXATE [Concomitant]
  3. LOMUSTINE [Concomitant]
  4. METHYLPREDNISOLONE [Concomitant]
  5. INTRATHECAL METHOTREXATE AND CYTARABINE [Concomitant]

REACTIONS (3)
  - DRUG TOXICITY [None]
  - PROCEDURAL COMPLICATION [None]
  - PULMONARY EMBOLISM [None]
